FAERS Safety Report 15049955 (Version 1)
Quarter: 2018Q2

REPORT INFORMATION
  Report Type: Spontaneous
  Country: US (occurrence: US)
  Receive Date: 20180622
  Receipt Date: 20180622
  Transmission Date: 20180711
  Serious: Yes (Other)
  Sender: FDA-Public Use
  Company Number: US-LPDUSPRD-20181074

PATIENT
  Sex: Male

DRUGS (1)
  1. LIDOCAINE HCL INJECTION, USP (0626-25) [Suspect]
     Active Substance: LIDOCAINE HYDROCHLORIDE
     Dosage: 2%
     Route: 051

REACTIONS (3)
  - Generalised tonic-clonic seizure [Unknown]
  - Product packaging confusion [Unknown]
  - Wrong drug administered [Unknown]
